FAERS Safety Report 7320994-4 (Version None)
Quarter: 2011Q1

REPORT INFORMATION
  Report Type: 
  Country: None (occurrence: None)
  Receive Date: 20110228
  Receipt Date: 20110218
  Transmission Date: 20110831
  Serious: Yes (Other)
  Sender: FDA-Public Use
  Company Number: IT-JNJFOC-20110206859

PATIENT
  Age: 33 Year
  Sex: Male

DRUGS (2)
  1. HALDOL [Suspect]
     Indication: SELF INJURIOUS BEHAVIOUR
     Route: 048
  2. RISPERDAL [Suspect]
     Indication: SELF INJURIOUS BEHAVIOUR
     Route: 065

REACTIONS (1)
  - SELF INJURIOUS BEHAVIOUR [None]
